FAERS Safety Report 9241254 (Version 2)
Quarter: 2013Q3

REPORT INFORMATION
  Report Type: Spontaneous
  Country: US (occurrence: US)
  Receive Date: 20130419
  Receipt Date: 20130725
  Transmission Date: 20140515
  Serious: No
  Sender: FDA-Public Use
  Company Number: US-BIOGENIDEC-2013BI033870

PATIENT
  Age: 32 Year
  Sex: Female

DRUGS (1)
  1. TYSABRI [Suspect]
     Indication: MULTIPLE SCLEROSIS
     Route: 042
     Dates: start: 20130219

REACTIONS (8)
  - Burning sensation [Not Recovered/Not Resolved]
  - Hypoaesthesia [Not Recovered/Not Resolved]
  - Feeling hot [Not Recovered/Not Resolved]
  - Cold sweat [Not Recovered/Not Resolved]
  - Mood swings [Not Recovered/Not Resolved]
  - Memory impairment [Not Recovered/Not Resolved]
  - Temperature intolerance [Not Recovered/Not Resolved]
  - Hypersensitivity [Recovered/Resolved]
